FAERS Safety Report 16230840 (Version 2)
Quarter: 2019Q2

REPORT INFORMATION
  Report Type: Spontaneous
  Country: US (occurrence: US)
  Receive Date: 20190423
  Receipt Date: 20190521
  Transmission Date: 20190711
  Serious: Yes (Other)
  Sender: FDA-Public Use
  Company Number: PHEH2019US017115

PATIENT
  Age: 4 Year
  Sex: Male

DRUGS (4)
  1. VINBLASTINE [Suspect]
     Active Substance: VINBLASTINE
     Indication: METASTASES TO MENINGES
  2. CARBOPLATIN. [Suspect]
     Active Substance: CARBOPLATIN
     Indication: GLIONEURONAL TUMOUR
     Dosage: UNK UNK, QMO
     Route: 065
     Dates: start: 201801, end: 201812
  3. VINBLASTINE [Suspect]
     Active Substance: VINBLASTINE
     Indication: GLIONEURONAL TUMOUR
     Dosage: UNK UNK, QW
     Route: 065
     Dates: start: 201801, end: 201812
  4. CARBOPLATIN. [Suspect]
     Active Substance: CARBOPLATIN
     Indication: METASTASES TO MENINGES

REACTIONS (3)
  - Glioneuronal tumour [Unknown]
  - Malignant neoplasm progression [Unknown]
  - Metastases to meninges [Unknown]

NARRATIVE: CASE EVENT DATE: 201904
